FAERS Safety Report 6748167-4 (Version None)
Quarter: 2010Q2

REPORT INFORMATION
  Report Type: 
  Country: None (occurrence: None)
  Receive Date: 20100531
  Receipt Date: 20100521
  Transmission Date: 20101027
  Serious: Yes (Other)
  Sender: FDA-Public Use
  Company Number: IT-BRISTOL-MYERS SQUIBB COMPANY-15123979

PATIENT
  Sex: Female

DRUGS (1)
  1. APROVEL TABS [Suspect]
     Dosage: INITIATED AT 150MG
     Route: 048

REACTIONS (3)
  - COUGH [None]
  - HYPERKALAEMIA [None]
  - VASCULITIS [None]
